FAERS Safety Report 8884862 (Version 1)
Quarter: 2012Q4

REPORT INFORMATION
  Report Type: 
  Country: AR (occurrence: AR)
  Receive Date: 20121102
  Receipt Date: 20121102
  Transmission Date: 20130627
  Serious: Yes (Hospitalization)
  Sender: FDA-Public Use
  Company Number: AR-ABBOTT-12P-007-1002158-00

PATIENT
  Age: 57 Year
  Sex: Male

DRUGS (7)
  1. FENOFIBRATE [Suspect]
     Indication: BLOOD TRIGLYCERIDES INCREASED
  2. MYCOPHENOLATE MOFETIL [Interacting]
     Indication: IMMUNOSUPPRESSION
  3. MYCOPHENOLATE MOFETIL [Interacting]
  4. MEPREDNISONE [Concomitant]
     Indication: IMMUNOSUPPRESSION
  5. LOSARTAN [Concomitant]
     Indication: HYPERTENSION
  6. EZETIMIBE W/SIMVASTATIN [Concomitant]
     Indication: DYSLIPIDAEMIA
     Dosage: 10/20 mg
  7. EZETIMIBE W/SIMVASTATIN [Concomitant]

REACTIONS (4)
  - Febrile neutropenia [Recovered/Resolved]
  - Drug interaction [Recovered/Resolved]
  - Bone marrow failure [None]
  - Myeloid maturation arrest [None]
